APPROVED DRUG PRODUCT: CEFPROZIL
Active Ingredient: CEFPROZIL
Strength: 250MG
Dosage Form/Route: TABLET;ORAL
Application: A065198 | Product #001
Applicant: RANBAXY LABORATORIES LTD
Approved: Dec 13, 2006 | RLD: No | RS: No | Type: DISCN